FAERS Safety Report 5115495-8 (Version None)
Quarter: 2006Q3

REPORT INFORMATION
  Report Type: 
  Country: None (occurrence: None)
  Receive Date: 20060927
  Receipt Date: 20060904
  Transmission Date: 20061208
  Serious: Yes (Other)
  Sender: FDA-Public Use
  Company Number: PHFR2006MT02732

PATIENT
  Age: 75 Year
  Sex: Female
  Weight: 90 kg

DRUGS (4)
  1. CATAFLAM [Suspect]
     Indication: PAIN
     Dosage: 150MG DAILY
     Route: 048
     Dates: start: 20060814
  2. CATAFLAM [Suspect]
     Dosage: 50MG DAILY
     Route: 048
     Dates: end: 20060819
  3. ENALAPRIL [Concomitant]
     Dosage: 20MG DAILY
     Route: 065
  4. ISTIN [Concomitant]
     Dosage: 5MG DAILY
     Route: 065

REACTIONS (1)
  - GASTRIC HAEMORRHAGE [None]
